FAERS Safety Report 10227674 (Version 2)
Quarter: 2014Q2

REPORT INFORMATION
  Report Type: Report from Study
  Country: AU (occurrence: AU)
  Receive Date: 20140610
  Receipt Date: 20140610
  Transmission Date: 20141212
  Serious: Yes (Other)
  Sender: FDA-Public Use
  Company Number: AU-SA-200715120GDDC

PATIENT
  Age: 43 Year
  Sex: Female

DRUGS (17)
  1. LANTUS [Suspect]
     Indication: TYPE 2 DIABETES MELLITUS
     Dosage: STOP DATE: MID 2007
     Route: 058
     Dates: start: 20070101
  2. LANTUS [Suspect]
     Indication: DIABETES MELLITUS INADEQUATE CONTROL
     Dosage: STOP DATE: MID 2007
     Route: 058
     Dates: start: 20070101
  3. LANTUS [Suspect]
     Indication: TYPE 2 DIABETES MELLITUS
     Route: 058
     Dates: start: 20140510
  4. LANTUS [Suspect]
     Indication: DIABETES MELLITUS INADEQUATE CONTROL
     Route: 058
     Dates: start: 20140510
  5. LANTUS [Suspect]
     Indication: TYPE 2 DIABETES MELLITUS
     Route: 058
     Dates: start: 20140527
  6. LANTUS [Suspect]
     Indication: DIABETES MELLITUS INADEQUATE CONTROL
     Route: 058
     Dates: start: 20140527
  7. AUTOPEN 24 [Suspect]
     Route: 058
  8. ACTRAPID [Concomitant]
     Indication: DIABETES MELLITUS
     Route: 058
  9. DIAMICRON [Concomitant]
  10. PANTOPRAZOLE [Concomitant]
  11. ESCITALOPRAM [Concomitant]
  12. VITAMIN B6 [Concomitant]
  13. OSTELIN [Concomitant]
  14. SODIUM VALPROATE [Concomitant]
  15. JANUVIA [Concomitant]
  16. ATORVASTATIN [Concomitant]
  17. MIRTAZAPINE [Concomitant]

REACTIONS (3)
  - Eye haemorrhage [Recovering/Resolving]
  - Furuncle [Unknown]
  - Abdominal pain [Not Recovered/Not Resolved]
